FAERS Safety Report 12618160 (Version 1)
Quarter: 2016Q3

REPORT INFORMATION
  Report Type: Spontaneous
  Country: FR (occurrence: FR)
  Receive Date: 20160803
  Receipt Date: 20160803
  Transmission Date: 20161109
  Serious: Yes (Hospitalization, Other)
  Sender: FDA-Public Use
  Company Number: FR-ELI_LILLY_AND_COMPANY-FR201607010404

PATIENT
  Age: 60 Year
  Sex: Male

DRUGS (7)
  1. CISPLATINE [Concomitant]
     Active Substance: CISPLATIN
     Dosage: UNK, UNKNOWN
     Route: 065
     Dates: start: 201509, end: 20151022
  2. ALIMTA [Suspect]
     Active Substance: PEMETREXED DISODIUM
     Indication: LUNG CANCER METASTATIC
     Dosage: UNK UNK, UNKNOWN
     Route: 065
     Dates: start: 201204, end: 201311
  3. CISPLATINE [Concomitant]
     Active Substance: CISPLATIN
     Dosage: UNK, SINGLE
     Route: 065
     Dates: start: 201406, end: 201406
  4. ALIMTA [Suspect]
     Active Substance: PEMETREXED DISODIUM
     Dosage: UNK UNK, SINGLE
     Route: 065
     Dates: start: 20140610, end: 20140610
  5. ALIMTA [Suspect]
     Active Substance: PEMETREXED DISODIUM
     Dosage: 935 MG, CYCLICAL
     Route: 051
     Dates: start: 20151119, end: 20160204
  6. ALIMTA [Suspect]
     Active Substance: PEMETREXED DISODIUM
     Dosage: 935 MG, CYCLICAL
     Route: 051
     Dates: start: 20150903, end: 20150924
  7. CISPLATINE [Concomitant]
     Active Substance: CISPLATIN
     Indication: LUNG ADENOCARCINOMA METASTATIC
     Dosage: UNK, UNKNOWN
     Route: 065
     Dates: start: 2012, end: 2012

REACTIONS (4)
  - Atelectasis [Unknown]
  - Skin reaction [Unknown]
  - Pleural effusion [Recovered/Resolved]
  - Dyspnoea exertional [Unknown]

NARRATIVE: CASE EVENT DATE: 20150924
